FAERS Safety Report 14918001 (Version 1)
Quarter: 2018Q2

REPORT INFORMATION
  Report Type: Spontaneous
  Country: FR (occurrence: FR)
  Receive Date: 20180521
  Receipt Date: 20180521
  Transmission Date: 20180711
  Serious: Yes (Other)
  Sender: FDA-Public Use
  Company Number: FR-MERCK KGAA-2048113

PATIENT
  Age: 65 Year
  Sex: Female

DRUGS (1)
  1. NOVOTHYROX [Suspect]
     Active Substance: LEVOTHYROXINE SODIUM
     Indication: HYPOTHYROIDISM
     Route: 048
     Dates: end: 20171004

REACTIONS (15)
  - Rhinorrhoea [Not Recovered/Not Resolved]
  - Arthralgia [Not Recovered/Not Resolved]
  - Pain in extremity [Not Recovered/Not Resolved]
  - Insomnia [Not Recovered/Not Resolved]
  - Impaired work ability [None]
  - Blood thyroid stimulating hormone decreased [Recovered/Resolved]
  - Gait disturbance [None]
  - Mobility decreased [None]
  - Sneezing [Not Recovered/Not Resolved]
  - Impaired driving ability [None]
  - Dysstasia [None]
  - Social avoidant behaviour [None]
  - Weight increased [Not Recovered/Not Resolved]
  - Gamma-glutamyltransferase increased [None]
  - Decreased activity [None]

NARRATIVE: CASE EVENT DATE: 20170323
